FAERS Safety Report 8484027-9 (Version None)
Quarter: 2012Q2

REPORT INFORMATION
  Report Type: 
  Country: None (occurrence: None)
  Receive Date: 20120402
  Receipt Date: 20110525
  Transmission Date: 20120825
  Serious: Yes (Hospitalization)
  Sender: FDA-Public Use
  Company Number: A-NJ2011-49529

PATIENT
  Age: 15 Year
  Sex: Female

DRUGS (5)
  1. VENTAVIS [Suspect]
     Indication: PULMONARY ARTERIAL HYPERTENSION
     Dosage: ,  RESPIRATORY
     Route: 055
     Dates: start: 20100819
  2. REVATIO [Concomitant]
  3. TRACLEER [Suspect]
     Indication: PULMONARY ARTERIAL HYPERTENSION
     Dosage: , ORAL
     Route: 048
     Dates: start: 20080204
  4. CALCIUM CHANNEL BLOCKERS [Concomitant]
  5. LASIX [Concomitant]

REACTIONS (4)
  - HEART RATE INCREASED [None]
  - DYSSTASIA [None]
  - DIZZINESS [None]
  - PALLOR [None]
